FAERS Safety Report 23296005 (Version 1)
Quarter: 2023Q4

REPORT INFORMATION
  Report Type: Report from Study
  Country: US (occurrence: US)
  Receive Date: 20231214
  Receipt Date: 20231214
  Transmission Date: 20240110
  Serious: Yes (Other)
  Sender: FDA-Public Use
  Company Number: US-SUN PHARMACEUTICAL INDUSTRIES LTD-2023R1-423746

PATIENT

DRUGS (5)
  1. METHOTREXATE [Suspect]
     Active Substance: METHOTREXATE
     Indication: Neoplasm
     Dosage: 40 MG OF 2 G/M 2
     Route: 042
  2. DEXAMETHASONE [Suspect]
     Active Substance: DEXAMETHASONE
     Indication: Neoplasm
     Dosage: UNK, DAILY
     Route: 042
  3. IFOSFAMIDE [Suspect]
     Active Substance: IFOSFAMIDE
     Indication: Neoplasm
     Dosage: 1500 MILLIGRAM/SQ. METER
     Route: 042
  4. ETOPOSIDE [Suspect]
     Active Substance: ETOPOSIDE
     Indication: Neoplasm
     Dosage: 100 MILLIGRAM/SQ. METER
     Route: 042
  5. PEG/L-ASPARAGINASE [Suspect]
     Active Substance: PEGASPARGASE
     Indication: Neoplasm
     Dosage: 2500 UNITS/M 2
     Route: 042

REACTIONS (1)
  - Lipase increased [Unknown]
